FAERS Safety Report 10109341 (Version 1)
Quarter: 2014Q2

REPORT INFORMATION
  Report Type: Spontaneous
  Country: US (occurrence: None)
  Receive Date: 20140424
  Receipt Date: 20140424
  Transmission Date: 20141212
  Serious: Yes (Other)
  Sender: FDA-Public Use
  Company Number: None

PATIENT
  Age: 15 Year
  Sex: Female
  Weight: 49.9 kg

DRUGS (1)
  1. LUPRON DEPOT [Suspect]
     Indication: PRECOCIOUS PUBERTY

REACTIONS (8)
  - Injection site erythema [None]
  - Depression [None]
  - Muscular weakness [None]
  - Bone disorder [None]
  - Hot flush [None]
  - Pain in jaw [None]
  - Migraine [None]
  - Fall [None]
